FAERS Safety Report 23819450 (Version 2)
Quarter: 2024Q2

REPORT INFORMATION
  Report Type: Spontaneous
  Country: US (occurrence: US)
  Receive Date: 20240506
  Receipt Date: 20240507
  Transmission Date: 20240716
  Serious: No
  Sender: FDA-Public Use
  Company Number: US-BIOGEN-2024BI01263351

PATIENT
  Age: 67 Year
  Sex: Female

DRUGS (2)
  1. TYSABRI [Suspect]
     Active Substance: NATALIZUMAB
     Indication: Multiple sclerosis
     Route: 050
     Dates: start: 20111017
  2. TYSABRI [Suspect]
     Active Substance: NATALIZUMAB
     Dosage: EVERY 7-8 WEEKS
     Route: 050
     Dates: start: 20220111

REACTIONS (3)
  - Prescribed underdose [Not Recovered/Not Resolved]
  - Musculoskeletal disorder [Unknown]
  - Cutaneous symptom [Unknown]

NARRATIVE: CASE EVENT DATE: 20220111
